FAERS Safety Report 7297206-3 (Version None)
Quarter: 2011Q1

REPORT INFORMATION
  Report Type: 
  Country: None (occurrence: None)
  Receive Date: 20110216
  Receipt Date: 20110210
  Transmission Date: 20110831
  Serious: Yes (Life-Threatening)
  Sender: FDA-Public Use
  Company Number: CH-JNJFOC-20110202791

PATIENT
  Age: 60 Year
  Sex: Female

DRUGS (13)
  1. LEPONEX [Interacting]
     Indication: SCHIZOPHRENIA, PARANOID TYPE
     Route: 048
  2. BELOK ZOC [Suspect]
     Indication: PRODUCT USED FOR UNKNOWN INDICATION
     Route: 065
  3. TENORMIN [Interacting]
     Indication: TACHYCARDIA
     Route: 048
  4. RISPERDAL [Suspect]
     Indication: SCHIZOPHRENIA, PARANOID TYPE
     Route: 048
  5. LYRICA [Interacting]
     Indication: POLYNEUROPATHY
     Route: 048
  6. NEXIUM [Concomitant]
     Route: 065
  7. RISPERDAL [Suspect]
     Route: 048
  8. RIVOTRIL [Concomitant]
     Route: 065
  9. ASPIRIN [Concomitant]
     Route: 065
  10. ACIDE FOLIQUE [Concomitant]
     Route: 065
  11. DAFALGAN [Concomitant]
     Route: 065
  12. REDOXON [Concomitant]
     Route: 065
  13. ARIXTRA [Concomitant]
     Route: 065

REACTIONS (2)
  - DRUG INTERACTION [None]
  - HYPOTENSION [None]
